FAERS Safety Report 4421232-2 (Version None)
Quarter: 2004Q3

REPORT INFORMATION
  Report Type: 
  Country: None (occurrence: None)
  Receive Date: 20040804
  Receipt Date: 20040722
  Transmission Date: 20050211
  Serious: Yes (Hospitalization)
  Sender: FDA-Public Use
  Company Number: 04P-013-0267921-00

PATIENT
  Age: 59 Year
  Sex: Male
  Weight: 85 kg

DRUGS (5)
  1. KALETRA [Suspect]
     Indication: HIV INFECTION
     Dosage: 3 CAPSULE, 2 IN 1 D
     Dates: start: 20031029
  2. DIDANOSINE [Concomitant]
  3. TENOFOVIR [Concomitant]
  4. NEVIRAPINE [Concomitant]
  5. VALPROATE SODIUM [Concomitant]

REACTIONS (3)
  - APHASIA [None]
  - CONFUSIONAL STATE [None]
  - HEADACHE [None]
